FAERS Safety Report 24586618 (Version 1)
Quarter: 2024Q4

REPORT INFORMATION
  Report Type: Spontaneous
  Country: GB (occurrence: GB)
  Receive Date: 20241107
  Receipt Date: 20241107
  Transmission Date: 20250114
  Serious: Yes (Other)
  Sender: ACCORD
  Company Number: None

PATIENT
  Age: 50 Year
  Sex: Male
  Weight: 70 kg

DRUGS (1)
  1. AMITRIPTYLINE [Suspect]
     Active Substance: AMITRIPTYLINE
     Indication: Headache
     Dosage: 10 MG ONCE A DAY AT NIGHT
     Dates: start: 20241025, end: 20241026

REACTIONS (5)
  - Nausea [Recovering/Resolving]
  - Asthenia [Recovering/Resolving]
  - Immobile [Recovering/Resolving]
  - Decreased appetite [Recovered/Resolved]
  - Urinary retention [Recovering/Resolving]
